FAERS Safety Report 9306713 (Version 1)
Quarter: 2013Q2

REPORT INFORMATION
  Report Type: Spontaneous
  Country: US (occurrence: US)
  Receive Date: 20130523
  Receipt Date: 20130523
  Transmission Date: 20140414
  Serious: Yes (Other)
  Sender: FDA-Public Use
  Company Number: US-ALEXION-A201301035

PATIENT
  Age: 37 Year
  Sex: Female
  Weight: 70.3 kg

DRUGS (20)
  1. SOLIRIS 300MG [Suspect]
     Indication: PAROXYSMAL NOCTURNAL HAEMOGLOBINURIA
     Dosage: 900 MG, Q2W
     Route: 042
     Dates: end: 2010
  2. SOLIRIS 300MG [Suspect]
     Dosage: 900 MG, Q10D
     Route: 042
     Dates: end: 201305
  3. SOLIRIS 300MG [Suspect]
     Dosage: 1200 MG, Q2W
     Route: 042
     Dates: start: 20130506
  4. MICRO K [Concomitant]
     Indication: HYPOKALAEMIA
     Dosage: UNK
  5. CALCIUM [Concomitant]
     Dosage: UNK
  6. MAGNESIUM [Concomitant]
     Dosage: UNK
  7. FOLIC ACID [Concomitant]
     Dosage: UNK
  8. POTASSIUM PHOSPHATE DIBASIC [Concomitant]
     Dosage: UNK
  9. VITAMIN C [Concomitant]
     Dosage: UNK
  10. VITAMIN D [Concomitant]
     Dosage: UNK
  11. SPIRONOLACTONE [Concomitant]
     Indication: OEDEMA
     Dosage: UNK
  12. PROTONIX [Concomitant]
     Indication: GASTROOESOPHAGEAL REFLUX DISEASE
     Dosage: UNK
  13. EFFEXOR [Concomitant]
     Dosage: UNK
  14. LASIX [Concomitant]
     Indication: OEDEMA
     Dosage: PRN
  15. PHENERGAN [Concomitant]
     Indication: PROPHYLAXIS OF NAUSEA AND VOMITING
     Dosage: PRN
  16. ATIVAN [Concomitant]
     Dosage: PRN
  17. TYLENOL [Concomitant]
     Indication: PAIN
     Dosage: PRN
  18. TYLENOL [Concomitant]
     Indication: ARTHRALGIA
  19. DILAUDID [Concomitant]
     Indication: PAIN
     Dosage: PRN
  20. DILAUDID [Concomitant]
     Indication: ARTHRALGIA

REACTIONS (5)
  - Blood product transfusion dependent [Recovering/Resolving]
  - Nephropathy [Not Recovered/Not Resolved]
  - Pain [Not Recovered/Not Resolved]
  - Weight increased [Recovered/Resolved]
  - Arthralgia [Not Recovered/Not Resolved]
